FAERS Safety Report 10080780 (Version 1)
Quarter: 2014Q2

REPORT INFORMATION
  Report Type: Spontaneous
  Country: BR (occurrence: BR)
  Receive Date: 20140416
  Receipt Date: 20140416
  Transmission Date: 20141212
  Serious: Yes (Disabling, Other)
  Sender: FDA-Public Use
  Company Number: BR-ELI_LILLY_AND_COMPANY-BR201404003373

PATIENT
  Sex: Female
  Weight: 64 kg

DRUGS (3)
  1. HUMULIN N [Suspect]
     Indication: DIABETES MELLITUS
     Dosage: 22 IU, EACH MORNING
     Route: 058
     Dates: start: 2012
  2. HUMULIN N [Suspect]
     Dosage: 12 IU, EACH EVENING
     Route: 058
     Dates: start: 2012
  3. GLIFAGE [Concomitant]
     Indication: TYPE 2 DIABETES MELLITUS
     Dosage: 50 MG, UNKNOWN
     Route: 048

REACTIONS (4)
  - Fall [Unknown]
  - Femur fracture [Not Recovered/Not Resolved]
  - Weight increased [Unknown]
  - Injection site discomfort [Unknown]
